FAERS Safety Report 25198709 (Version 1)
Quarter: 2025Q2

REPORT INFORMATION
  Report Type: Report from Study
  Country: FR (occurrence: FR)
  Receive Date: 20250415
  Receipt Date: 20250415
  Transmission Date: 20250716
  Serious: Yes (Hospitalization, Other)
  Sender: Norvium Bioscience
  Company Number: FR-Norvium Bioscience LLC-080018

PATIENT
  Age: 35 Year
  Sex: Male

DRUGS (3)
  1. PREGABALIN [Suspect]
     Active Substance: PREGABALIN
     Indication: Product used for unknown indication
     Dosage: GRADUALLY REACHED 1,200 MG PER DAY.
  2. GABAPENTIN [Suspect]
     Active Substance: GABAPENTIN
     Indication: Drug use disorder
     Dosage: 3000
  3. PALIPERIDONE [Concomitant]
     Active Substance: PALIPERIDONE
     Indication: Schizophrenia
     Dosage: 150 MG EVERY MONTH

REACTIONS (6)
  - Emotional distress [Unknown]
  - Drug dependence [Recovering/Resolving]
  - Confusional state [Unknown]
  - Hallucination [Unknown]
  - Therapy cessation [Unknown]
  - Drug use disorder [Not Recovered/Not Resolved]
